FAERS Safety Report 26200804 (Version 2)
Quarter: 2025Q4

REPORT INFORMATION
  Report Type: Report from Study
  Country: CA (occurrence: CA)
  Receive Date: 20251226
  Receipt Date: 20251231
  Transmission Date: 20260118
  Serious: Yes (Hospitalization, Other)
  Sender: ABBVIE
  Company Number: CA-ABBVIE-6605005

PATIENT
  Age: 47 Year
  Sex: Male

DRUGS (5)
  1. HUMIRA [Suspect]
     Active Substance: ADALIMUMAB
     Indication: Colitis ulcerative
     Route: 058
     Dates: start: 20190903, end: 20200424
  2. INFLIXIMAB [Suspect]
     Active Substance: INFLIXIMAB
     Indication: Product used for unknown indication
     Route: 065
  3. Salofalk [Concomitant]
     Indication: Product used for unknown indication
  4. ENEMA (SODIUM PHOSPHATE, DIBASIC\SODIUM PHOSPHATE, MONOBASIC) [Concomitant]
     Active Substance: SODIUM PHOSPHATE, DIBASIC\SODIUM PHOSPHATE, MONOBASIC
     Indication: Product used for unknown indication
  5. VANCOMYCIN [Concomitant]
     Active Substance: VANCOMYCIN
     Indication: Product used for unknown indication
     Dates: start: 2019, end: 2025

REACTIONS (24)
  - Haematochezia [Not Recovered/Not Resolved]
  - Ileectomy [Unknown]
  - Fistula [Unknown]
  - Small intestinal obstruction [Not Recovered/Not Resolved]
  - Steroid diabetes [Unknown]
  - Colitis ulcerative [Unknown]
  - Mucosal disorder [Unknown]
  - Cholangitis sclerosing [Unknown]
  - Drug ineffective [Unknown]
  - Abdominal pain [Not Recovered/Not Resolved]
  - Drug ineffective [Unknown]
  - Pyrexia [Recovered/Resolved]
  - Chills [Recovered/Resolved]
  - Asthenia [Unknown]
  - Retching [Unknown]
  - Gastrooesophageal reflux disease [Unknown]
  - Fatigue [Not Recovered/Not Resolved]
  - Diarrhoea [Not Recovered/Not Resolved]
  - Abdominal discomfort [Unknown]
  - Gastrointestinal disorder [Unknown]
  - Gastrointestinal wall thickening [Unknown]
  - Splenomegaly [Unknown]
  - Gastrointestinal disorder [Unknown]
  - Colitis [Unknown]

NARRATIVE: CASE EVENT DATE: 20200101
